FAERS Safety Report 8509048-9 (Version None)
Quarter: 2012Q3

REPORT INFORMATION
  Report Type: 
  Country: None (occurrence: None)
  Receive Date: 20120703
  Receipt Date: 20120614
  Transmission Date: 20120928
  Serious: Yes (Death)
  Sender: FDA-Public Use
  Company Number: JP-2012-2304

PATIENT
  Age: 71 Year
  Sex: Male

DRUGS (4)
  1. NAVELBINE [Suspect]
     Indication: NON-SMALL CELL LUNG CANCER
     Dosage: 33 MG, IV
     Route: 042
     Dates: start: 20120514, end: 20120521
  2. DEXAMETHASONE SODIUM PHOSPHATE [Concomitant]
  3. MAGMITT [Concomitant]
  4. EPINASTINE HYDROCHLORIDE [Concomitant]

REACTIONS (5)
  - CARDIO-RESPIRATORY ARREST [None]
  - HAEMOPTYSIS [None]
  - NEUTROPENIA [None]
  - PLATELET COUNT DECREASED [None]
  - PNEUMONIA [None]
